FAERS Safety Report 18651894 (Version 2)
Quarter: 2021Q1

REPORT INFORMATION
  Report Type: Spontaneous
  Country: US (occurrence: US)
  Receive Date: 20201223
  Receipt Date: 20210317
  Transmission Date: 20210419
  Serious: No
  Sender: FDA-Public Use
  Company Number: US-ELI_LILLY_AND_COMPANY-US202012010911

PATIENT
  Sex: Male

DRUGS (4)
  1. PROZAC [Suspect]
     Active Substance: FLUOXETINE HYDROCHLORIDE
     Indication: PRODUCT USED FOR UNKNOWN INDICATION
     Dosage: UNK UNK, UNKNOWN
     Route: 065
  2. HUMIRA [Suspect]
     Active Substance: ADALIMUMAB
     Indication: CROHN^S DISEASE
     Dosage: 40 MG, DAILY
     Route: 058
     Dates: start: 2020
  3. HUMIRA [Suspect]
     Active Substance: ADALIMUMAB
     Indication: CROHN^S DISEASE
     Dosage: 80 MG, OTHER, 15 DAYS
     Route: 058
     Dates: start: 20201106, end: 20201106
  4. HUMIRA [Suspect]
     Active Substance: ADALIMUMAB
     Dosage: 80 MG, OTHER, 15 DAYS
     Route: 058
     Dates: start: 202011, end: 202011

REACTIONS (9)
  - Rash [Unknown]
  - Defaecation urgency [Unknown]
  - Constipation [Recovering/Resolving]
  - Diarrhoea haemorrhagic [Unknown]
  - Malaise [Unknown]
  - Fatigue [Unknown]
  - Abnormal faeces [Unknown]
  - Weight decreased [Recovering/Resolving]
  - Rectal haemorrhage [Unknown]

NARRATIVE: CASE EVENT DATE: 2020
